FAERS Safety Report 5932679-7 (Version None)
Quarter: 2008Q4

REPORT INFORMATION
  Report Type: 
  Country: None (occurrence: None)
  Receive Date: 20081028
  Receipt Date: 20081021
  Transmission Date: 20090506
  Serious: Yes (Hospitalization)
  Sender: FDA-Public Use
  Company Number: US-ASTRAZENECA-2008UW23394

PATIENT
  Age: 74 Year
  Sex: Male
  Weight: 88.9 kg

DRUGS (14)
  1. NEXIUM [Suspect]
     Indication: GASTROOESOPHAGEAL REFLUX DISEASE
     Route: 048
  2. METFORMIN HCL [Concomitant]
  3. TRICOR [Concomitant]
  4. SYNTHROID [Concomitant]
  5. NIASPAN [Concomitant]
  6. CRESTOR [Concomitant]
  7. PRIMIDONE [Concomitant]
  8. COUMADIN [Concomitant]
  9. PROVENTIL [Concomitant]
  10. LOMOTIL [Concomitant]
  11. CELEXA [Concomitant]
  12. FISH OIL [Concomitant]
  13. ASPIRIN [Concomitant]
  14. VALTREX [Concomitant]

REACTIONS (2)
  - FALL [None]
  - UPPER LIMB FRACTURE [None]
